FAERS Safety Report 21196263 (Version 5)
Quarter: 2025Q3

REPORT INFORMATION
  Report Type: Spontaneous
  Country: EU (occurrence: EU)
  Receive Date: 20220810
  Receipt Date: 20250801
  Transmission Date: 20251020
  Serious: Yes (Death, Life-Threatening, Hospitalization, Other)
  Sender: SANOFI AVENTIS
  Company Number: EU-MLMSERVICE-20220803-3712892-1

PATIENT
  Age: 40 Year
  Sex: Female

DRUGS (10)
  1. ANTI-THYMOCYTE GLOBULIN (RABBIT) NOS [Suspect]
     Active Substance: LAPINE T-LYMPHOCYTE IMMUNE GLOBULIN
     Indication: Acute myeloid leukaemia
  2. FLUDARABINE PHOSPHATE [Suspect]
     Active Substance: FLUDARABINE PHOSPHATE
     Indication: Acute myeloid leukaemia
  3. CARMUSTINE [Suspect]
     Active Substance: CARMUSTINE
     Indication: Acute myeloid leukaemia
  4. MELPHALAN [Suspect]
     Active Substance: MELPHALAN
     Indication: Acute myeloid leukaemia
  5. MYCOPHENOLATE MOFETIL [Suspect]
     Active Substance: MYCOPHENOLATE MOFETIL
     Indication: Prophylaxis against graft versus host disease
     Dosage: 2 G, QD
  6. MYCOPHENOLATE MOFETIL [Suspect]
     Active Substance: MYCOPHENOLATE MOFETIL
     Indication: Acute myeloid leukaemia
  7. CYCLOSPORINE [Suspect]
     Active Substance: CYCLOSPORINE
     Indication: Prophylaxis against graft versus host disease
  8. CYCLOSPORINE [Suspect]
     Active Substance: CYCLOSPORINE
     Indication: Acute myeloid leukaemia
  9. SORAFENIB [Suspect]
     Active Substance: SORAFENIB
     Indication: Chloroma
  10. SORAFENIB [Suspect]
     Active Substance: SORAFENIB
     Indication: Acute myeloid leukaemia

REACTIONS (13)
  - Febrile neutropenia [Fatal]
  - Pneumonia adenoviral [Fatal]
  - Adenoviral hepatitis [Fatal]
  - Septic shock [Fatal]
  - Tachycardia [Fatal]
  - Leukopenia [Fatal]
  - Multiple organ dysfunction syndrome [Fatal]
  - Coagulopathy [Fatal]
  - Acute kidney injury [Fatal]
  - Respiratory failure [Fatal]
  - Lung consolidation [Fatal]
  - Lung opacity [Fatal]
  - Off label use [Unknown]
